FAERS Safety Report 18689482 (Version 1)
Quarter: 2020Q4

REPORT INFORMATION
  Report Type: Spontaneous
  Country: US (occurrence: US)
  Receive Date: 20201231
  Receipt Date: 20201231
  Transmission Date: 20210114
  Serious: Yes (Other)
  Sender: FDA-Public Use
  Company Number: US-PURDUE-USA-2020-0188338

PATIENT
  Sex: Female

DRUGS (3)
  1. OXY.IR [Suspect]
     Active Substance: OXYCODONE HYDROCHLORIDE
     Indication: PRODUCT USED FOR UNKNOWN INDICATION
     Dosage: UNK
     Route: 065
  2. OXYCODONE HYDROCHLORIDE (SIMILAR TO NDA 22-272) [Suspect]
     Active Substance: OXYCODONE HYDROCHLORIDE
     Indication: PAIN
     Dosage: 30 MG, Q3H
     Route: 048
  3. OXYCONTIN [Suspect]
     Active Substance: OXYCODONE HYDROCHLORIDE
     Indication: PAIN
     Dosage: 80 MG, Q8H
     Route: 048

REACTIONS (10)
  - Drug dependence [Unknown]
  - Mental disorder [Unknown]
  - Anger [Unknown]
  - Weight decreased [Unknown]
  - Paranoia [Unknown]
  - Loss of personal independence in daily activities [Unknown]
  - Crohn^s disease [Unknown]
  - Amnesia [Unknown]
  - Product prescribing issue [Unknown]
  - Inflammatory bowel disease [Unknown]
